FAERS Safety Report 20492193 (Version 1)
Quarter: 2022Q1

REPORT INFORMATION
  Report Type: Spontaneous
  Country: US (occurrence: US)
  Receive Date: 20220218
  Receipt Date: 20220218
  Transmission Date: 20220424
  Serious: No
  Sender: FDA-Public Use
  Company Number: US-PFIZER INC-202200248087

PATIENT
  Age: 68 Year
  Sex: Male

DRUGS (1)
  1. NEURONTIN [Suspect]
     Active Substance: GABAPENTIN
     Indication: Neuropathy peripheral
     Dosage: UNK
     Dates: start: 2021

REACTIONS (3)
  - Feeling abnormal [Unknown]
  - Psychiatric symptom [Unknown]
  - Off label use [Unknown]

NARRATIVE: CASE EVENT DATE: 20210101
